FAERS Safety Report 8380933-4 (Version None)
Quarter: 2012Q2

REPORT INFORMATION
  Report Type: 
  Country: None (occurrence: None)
  Receive Date: 20120523
  Receipt Date: 20120517
  Transmission Date: 20120825
  Serious: Yes (Other)
  Sender: FDA-Public Use
  Company Number: PHHY2012BR043466

PATIENT
  Sex: Female
  Weight: 70 kg

DRUGS (4)
  1. BISOPROLOL FUMARATE [Concomitant]
     Indication: HYPERTENSION
     Dosage: 1 DF (5 MG), DAILY
     Route: 048
     Dates: start: 20100101
  2. CRESTOR [Suspect]
     Indication: HYPERTENSION
     Dosage: 1 DF (10 MG), DAILY
     Route: 048
  3. SUSTRATE [Suspect]
     Indication: HYPERTENSION
     Dosage: 1 DF (10 MG), DAILY
     Route: 048
  4. DIOVAN HCT [Suspect]
     Indication: HYPERTENSION
     Dosage: 1 DF (320/12.5 MG), DAILY
     Route: 048

REACTIONS (11)
  - NASAL CONGESTION [None]
  - RHINITIS [None]
  - DRY THROAT [None]
  - BRONCHOSPASM [None]
  - DYSPNOEA [None]
  - INFLUENZA [None]
  - COUGH [None]
  - PHARYNGEAL OEDEMA [None]
  - FATIGUE [None]
  - ASTHMA [None]
  - ALLERGIC COUGH [None]
